FAERS Safety Report 12349782 (Version 1)
Quarter: 2016Q2

REPORT INFORMATION
  Report Type: Report from Study
  Country: US (occurrence: US)
  Receive Date: 20160510
  Receipt Date: 20160510
  Transmission Date: 20160815
  Serious: Yes (Hospitalization, Other)
  Sender: FDA-Public Use
  Company Number: US-ABBVIE-16K-163-1622914-00

PATIENT
  Age: 66 Year
  Sex: Female
  Weight: 61.29 kg

DRUGS (4)
  1. CLARITIN [Concomitant]
     Active Substance: LORATADINE
     Indication: HYPERSENSITIVITY
  2. WELLBUTRIN [Concomitant]
     Active Substance: BUPROPION HYDROCHLORIDE
     Indication: CROHN^S DISEASE
  3. MUCINEX [Concomitant]
     Active Substance: GUAIFENESIN
     Indication: HYPERSENSITIVITY
  4. HUMIRA [Suspect]
     Active Substance: ADALIMUMAB
     Indication: CROHN^S DISEASE
     Route: 058
     Dates: start: 201505

REACTIONS (3)
  - Procedural complication [Recovered/Resolved]
  - Intestinal prolapse [Recovered/Resolved]
  - Colon dysplasia [Not Recovered/Not Resolved]

NARRATIVE: CASE EVENT DATE: 201601
